FAERS Safety Report 4483051-0 (Version None)
Quarter: 2004Q3

REPORT INFORMATION
  Report Type: 
  Country: None (occurrence: None)
  Receive Date: 20040921
  Receipt Date: 20040512
  Transmission Date: 20050211
  Serious: Yes (Hospitalization)
  Sender: FDA-Public Use
  Company Number: 163-20785-04050314

PATIENT
  Age: 57 Year
  Sex: Female

DRUGS (2)
  1. THALOMID [Suspect]
     Indication: MULTIPLE MYELOMA
     Dosage: 100/50 MG, DAILY, ORAL
     Route: 048
     Dates: start: 20010518
  2. AREDIA (PAMIDRONATE DISODIUM) (SOLUTION) [Suspect]
     Indication: MULTIPLE MYELOMA
     Dosage: 90 MG, DAILY, INTRAVENOUS
     Route: 042
     Dates: start: 20010518

REACTIONS (3)
  - CHEST PAIN [None]
  - DYSPNOEA [None]
  - FATIGUE [None]
